FAERS Safety Report 7990252-3 (Version None)
Quarter: 2011Q4

REPORT INFORMATION
  Report Type: 
  Country: None (occurrence: None)
  Receive Date: 20111219
  Receipt Date: 20110630
  Transmission Date: 20120403
  Serious: No
  Sender: FDA-Public Use
  Company Number: US-ASTRAZENECA-2011SE10958

PATIENT
  Age: 51 Year
  Sex: Female
  Weight: 61.2 kg

DRUGS (1)
  1. CRESTOR [Suspect]
     Indication: HYPERCHOLESTEROLAEMIA
     Route: 048
     Dates: start: 20100901

REACTIONS (5)
  - VISION BLURRED [None]
  - EYE PAIN [None]
  - WEIGHT LOSS POOR [None]
  - EYE IRRITATION [None]
  - MYDRIASIS [None]
